FAERS Safety Report 15350426 (Version 1)
Quarter: 2018Q3

REPORT INFORMATION
  Report Type: Spontaneous
  Country: US (occurrence: US)
  Receive Date: 20180905
  Receipt Date: 20180905
  Transmission Date: 20181010
  Serious: Yes (Other)
  Sender: FDA-Public Use
  Company Number: US-AUROBINDO-AUR-APL-2018-043231

PATIENT
  Age: 30 Year
  Sex: Male

DRUGS (4)
  1. DEXAMFETAMINE [Suspect]
     Active Substance: DEXTROAMPHETAMINE
     Indication: ATTENTION DEFICIT/HYPERACTIVITY DISORDER
     Dosage: ()
     Route: 065
  2. ADDERALL [Suspect]
     Active Substance: AMPHETAMINE ASPARTATE\AMPHETAMINE SULFATE\DEXTROAMPHETAMINE SACCHARATE\DEXTROAMPHETAMINE SULFATE
     Indication: ATTENTION DEFICIT/HYPERACTIVITY DISORDER
     Route: 065
  3. METHYLPHENIDATE HYDROCHLORIDE. [Suspect]
     Active Substance: METHYLPHENIDATE HYDROCHLORIDE
     Indication: ATTENTION DEFICIT/HYPERACTIVITY DISORDER
     Dosage: ()
     Route: 065
  4. ADDERALL [Suspect]
     Active Substance: AMPHETAMINE ASPARTATE\AMPHETAMINE SULFATE\DEXTROAMPHETAMINE SACCHARATE\DEXTROAMPHETAMINE SULFATE
     Dosage: 150? 200 MG TWO?THREE DAYS A WEEK, RARELY IN CONJUNCTION WITH UP TO ONE GRAM OF COCAINE ()

REACTIONS (8)
  - Suicide attempt [Unknown]
  - Anxiety [Unknown]
  - Suicidal ideation [Unknown]
  - Depression [Unknown]
  - Erectile dysfunction [Recovering/Resolving]
  - Intentional product misuse [Unknown]
  - Sexual dysfunction [Not Recovered/Not Resolved]
  - Cognitive disorder [Unknown]
